FAERS Safety Report 21414078 (Version 1)
Quarter: 2022Q4

REPORT INFORMATION
  Report Type: Spontaneous
  Country: US (occurrence: US)
  Receive Date: 20221006
  Receipt Date: 20221006
  Transmission Date: 20230112
  Serious: Yes (Other)
  Sender: FDA-Public Use
  Company Number: US-CELLTRION INC.-2022US016049

PATIENT

DRUGS (4)
  1. TRUXIMA [Suspect]
     Active Substance: RITUXIMAB-ABBS
     Indication: Neoplasm
     Dosage: 800 MG, 1/WEEK
     Dates: start: 20220707
  2. TRUXIMA [Suspect]
     Active Substance: RITUXIMAB-ABBS
     Indication: Haematopoietic neoplasm
     Dosage: 800 MG, 1/WEEK
     Dates: start: 20220714
  3. TRUXIMA [Suspect]
     Active Substance: RITUXIMAB-ABBS
     Dosage: 800 MG, 1/WEEK
     Dates: start: 20220728
  4. TRUXIMA [Suspect]
     Active Substance: RITUXIMAB-ABBS
     Dosage: 800 MG, 1/WEEK
     Dates: start: 20220804

REACTIONS (3)
  - Neoplasm [Unknown]
  - Haematopoietic neoplasm [Unknown]
  - Off label use [Unknown]
